FAERS Safety Report 13899041 (Version 1)
Quarter: 2017Q3

REPORT INFORMATION
  Report Type: Spontaneous
  Country: US (occurrence: None)
  Receive Date: 20170817
  Receipt Date: 20170817
  Transmission Date: 20171127
  Serious: Yes (Hospitalization)
  Sender: FDA-Public Use
  Company Number: None

PATIENT
  Age: 75 Year
  Sex: Male

DRUGS (1)
  1. COSENTYX [Suspect]
     Active Substance: SECUKINUMAB
     Indication: PSORIASIS
     Dosage: 300MG Q4WKS SC
     Route: 058
     Dates: start: 20170228

REACTIONS (2)
  - Infection [None]
  - Neck surgery [None]

NARRATIVE: CASE EVENT DATE: 20170729
